FAERS Safety Report 22593556 (Version 1)
Quarter: 2023Q2

REPORT INFORMATION
  Report Type: Spontaneous
  Country: US (occurrence: US)
  Receive Date: 20230613
  Receipt Date: 20230613
  Transmission Date: 20230721
  Serious: No
  Sender: FDA-Public Use
  Company Number: US-SA-SAC20230613000227

PATIENT
  Age: 64 Year
  Sex: Female

DRUGS (3)
  1. DUPIXENT [Suspect]
     Active Substance: DUPILUMAB
     Indication: Neurodermatitis
     Dosage: 600MG,1X
     Route: 058
     Dates: start: 202303
  2. DUPIXENT [Suspect]
     Active Substance: DUPILUMAB
     Dosage: 300MG,QOW
     Route: 058
  3. DUPIXENT [Suspect]
     Active Substance: DUPILUMAB
     Dosage: 1 DF, QW
     Route: 058

REACTIONS (1)
  - Inappropriate schedule of product administration [Unknown]
